FAERS Safety Report 25772445 (Version 1)
Quarter: 2025Q3

REPORT INFORMATION
  Report Type: Spontaneous
  Country: US (occurrence: US)
  Receive Date: 20250908
  Receipt Date: 20250908
  Transmission Date: 20251021
  Serious: No
  Sender: SANOFI AVENTIS
  Company Number: US-SANOFI-02638017

PATIENT
  Age: 37 Year
  Sex: Female

DRUGS (1)
  1. LANTUS SOLOSTAR [Suspect]
     Active Substance: INSULIN GLARGINE
     Indication: Type 2 diabetes mellitus
     Dosage: 30 IU, QD AND DRUG TREATMENT DURATION: ONCE OR TWICE
     Route: 058

REACTIONS (3)
  - Injection site pain [Unknown]
  - Product storage error [Unknown]
  - Maternal exposure during pregnancy [Unknown]
